FAERS Safety Report 12200753 (Version 3)
Quarter: 2016Q2

REPORT INFORMATION
  Report Type: Spontaneous
  Country: US (occurrence: US)
  Receive Date: 20160322
  Receipt Date: 20160420
  Transmission Date: 20160815
  Serious: Yes (Other)
  Sender: FDA-Public Use
  Company Number: US-GLAXOSMITHKLINE-US2016GSK036279

PATIENT
  Sex: Female
  Weight: 93.88 kg

DRUGS (2)
  1. BREO ELLIPTA [Suspect]
     Active Substance: FLUTICASONE FUROATE\VILANTEROL TRIFENATATE
     Indication: PRODUCT USED FOR UNKNOWN INDICATION
     Dosage: 1 PUFF(S), QD
     Route: 055
     Dates: start: 20160129, end: 20160224
  2. DULERA [Concomitant]
     Active Substance: FORMOTEROL FUMARATE DIHYDRATE\MOMETASONE FUROATE

REACTIONS (19)
  - Oesophageal ulcer [Unknown]
  - Stomatitis [Unknown]
  - Mouth swelling [Unknown]
  - Antibiotic therapy [Unknown]
  - Dysphonia [Unknown]
  - Pyrexia [Unknown]
  - Glossodynia [Unknown]
  - Mouth ulceration [Unknown]
  - Candida infection [Unknown]
  - Throat irritation [Unknown]
  - Tongue ulceration [Unknown]
  - Immune system disorder [Unknown]
  - Oropharyngeal pain [Unknown]
  - Cough [Unknown]
  - Lip ulceration [Unknown]
  - Inhalation therapy [Unknown]
  - Steroid therapy [Unknown]
  - Adverse drug reaction [Unknown]
  - Pharyngeal oedema [Unknown]
